FAERS Safety Report 17833887 (Version 1)
Quarter: 2020Q2

REPORT INFORMATION
  Report Type: Spontaneous
  Country: US (occurrence: US)
  Receive Date: 20200528
  Receipt Date: 20200528
  Transmission Date: 20200714
  Serious: No
  Sender: FDA-Public Use
  Company Number: US-ALLERGAN-2000083US

PATIENT
  Sex: Male

DRUGS (1)
  1. DICYCLOMINE HCL UNK [Suspect]
     Active Substance: DICYCLOMINE HYDROCHLORIDE
     Indication: PRODUCT USED FOR UNKNOWN INDICATION
     Dosage: 20 MG, UNKNOWN
     Dates: start: 2008

REACTIONS (5)
  - Irritable bowel syndrome [Unknown]
  - Muscle spasms [Unknown]
  - Hypersensitivity [Unknown]
  - Blood pressure increased [Unknown]
  - Disorientation [Unknown]

NARRATIVE: CASE EVENT DATE: 2008
